FAERS Safety Report 4834888-7 (Version None)
Quarter: 2005Q4

REPORT INFORMATION
  Report Type: 
  Country: None (occurrence: None)
  Receive Date: 20051115
  Receipt Date: 20051101
  Transmission Date: 20060501
  Serious: Yes (Other)
  Sender: FDA-Public Use
  Company Number: MK200511-0032-1

PATIENT
  Age: 14 Year
  Sex: Male

DRUGS (1)
  1. PHOSPHOCOL P32 [Suspect]
     Indication: SYNOVECTOMY
     Dosage: 0.5 AND 1 MCI, ONCE
     Dates: start: 20040101, end: 20040101

REACTIONS (2)
  - LYMPHOCYTIC LEUKAEMIA [None]
  - MEDIASTINAL MASS [None]
